FAERS Safety Report 4365245-8 (Version None)
Quarter: 2004Q2

REPORT INFORMATION
  Report Type: 
  Country: None (occurrence: None)
  Receive Date: 20040525
  Receipt Date: 20040416
  Transmission Date: 20050107
  Serious: No
  Sender: FDA-Public Use
  Company Number: PHEH2004US04331

PATIENT
  Age: 76 Year
  Sex: Female

DRUGS (2)
  1. ZELNORM [Suspect]
  2. SENNOSIDE A (SENNOSIDE A) [Concomitant]

REACTIONS (1)
  - FAECES DISCOLOURED [None]
